FAERS Safety Report 5300921-1 (Version None)
Quarter: 2007Q2

REPORT INFORMATION
  Report Type: 
  Country: None (occurrence: None)
  Receive Date: 20070411
  Receipt Date: 20061207
  Transmission Date: 20071010
  Serious: Yes (Other)
  Sender: FDA-Public Use
  Company Number: 2006151343

PATIENT
  Sex: Male

DRUGS (1)
  1. VISINE EYE DROPS [Suspect]
     Dosage: ONCE, OPHTHALMIC
     Route: 047
     Dates: start: 20061207, end: 20061207

REACTIONS (2)
  - BLINDNESS [None]
  - EYE IRRITATION [None]
